FAERS Safety Report 4333340-5 (Version None)
Quarter: 2004Q2

REPORT INFORMATION
  Report Type: 
  Country: None (occurrence: None)
  Receive Date: 20040406
  Receipt Date: 20020516
  Transmission Date: 20050107
  Serious: Yes (Hospitalization, Other)
  Sender: FDA-Public Use
  Company Number: US-MERCK-0205USA02050

PATIENT
  Age: 69 Year
  Sex: Female
  Weight: 114 kg

DRUGS (4)
  1. VIOXX [Suspect]
     Indication: JOINT ARTHROPLASTY
     Route: 048
     Dates: start: 20000601, end: 20000701
  2. VIOXX [Suspect]
     Route: 048
     Dates: start: 20000701, end: 20010101
  3. VIOXX [Suspect]
     Indication: ARTHRALGIA
     Route: 048
     Dates: start: 20000601, end: 20000701
  4. VIOXX [Suspect]
     Route: 048
     Dates: start: 20000701, end: 20010101

REACTIONS (21)
  - AORTIC STENOSIS [None]
  - BRONCHITIS CHRONIC [None]
  - CARDIAC FAILURE HIGH OUTPUT [None]
  - CARDIOMEGALY [None]
  - CAROTID ARTERY STENOSIS [None]
  - CELLULITIS [None]
  - DERMAL CYST [None]
  - DIZZINESS [None]
  - GASTROENTERITIS [None]
  - HYPERTENSION [None]
  - INJURY [None]
  - LYMPHADENOPATHY MEDIASTINAL [None]
  - MUSCULOSKELETAL DISCOMFORT [None]
  - NAUSEA [None]
  - OEDEMA [None]
  - PAIN [None]
  - PULMONARY HYPERTENSION [None]
  - RENAL ARTERY STENOSIS [None]
  - SINUS BRADYCARDIA [None]
  - SKIN PAPILLOMA [None]
  - VERTIGO [None]
